FAERS Safety Report 4684062-2 (Version None)
Quarter: 2005Q2

REPORT INFORMATION
  Report Type: 
  Country: None (occurrence: None)
  Receive Date: 20050525
  Receipt Date: 20050404
  Transmission Date: 20051028
  Serious: Yes (Other)
  Sender: FDA-Public Use
  Company Number: US-JNJFOC-20050300426

PATIENT
  Age: 45 Year
  Sex: Female

DRUGS (3)
  1. ULTRAM [Suspect]
  2. SOMA [Concomitant]
  3. TRAZODONE (TRAZODONE) [Concomitant]

REACTIONS (2)
  - CONVULSION [None]
  - INTENTIONAL MISUSE [None]
